FAERS Safety Report 4520019-X (Version None)
Quarter: 2004Q4

REPORT INFORMATION
  Report Type: 
  Country: None (occurrence: None)
  Receive Date: 20041207
  Receipt Date: 20041129
  Transmission Date: 20050328
  Serious: Yes (Life-Threatening, Other)
  Sender: FDA-Public Use
  Company Number: JP-JNJFOC-20041106869

PATIENT
  Age: 85 Year
  Sex: Female

DRUGS (2)
  1. RISPERDAL [Suspect]
     Route: 049
  2. ANTIHYPERTENSIVES [Concomitant]
     Indication: HYPERTENSION

REACTIONS (3)
  - DRUG INTERACTION [None]
  - LEUKOPENIA [None]
  - WHITE BLOOD CELL COUNT DECREASED [None]
